FAERS Safety Report 9998072 (Version 1)
Quarter: 2014Q1

REPORT INFORMATION
  Report Type: Spontaneous
  Country: US (occurrence: US)
  Receive Date: 20140311
  Receipt Date: 20140311
  Transmission Date: 20141002
  Serious: Yes (Other)
  Sender: FDA-Public Use
  Company Number: US-BAXTER-2014BAX011793

PATIENT
  Age: 15 Year
  Sex: Female

DRUGS (15)
  1. ONDANSETRON [Concomitant]
     Indication: PROPHYLAXIS OF NAUSEA AND VOMITING
     Route: 065
  2. DECADRON [Concomitant]
     Indication: PROPHYLAXIS OF NAUSEA AND VOMITING
     Route: 065
  3. DEXMEDETOMIDINE [Concomitant]
     Indication: AGITATION
     Route: 065
  4. HYDROMORPHONE [Concomitant]
     Indication: AGITATION
     Route: 065
  5. SEVOFLURANE, USP [Suspect]
     Indication: MAINTENANCE OF ANAESTHESIA
     Dosage: 1.5-2.5 %
     Route: 065
  6. MIDAZOLAM [Concomitant]
     Indication: ANXIOLYTIC THERAPY
     Route: 042
  7. MIDAZOLAM [Concomitant]
     Indication: AGITATION
     Route: 065
  8. FENTANYL [Concomitant]
     Indication: INDUCTION OF ANAESTHESIA
     Route: 065
  9. FENTANYL [Concomitant]
     Indication: AGITATION
     Route: 065
  10. PROPOFOL [Concomitant]
     Indication: INDUCTION OF ANAESTHESIA
     Route: 065
  11. ACETAMINOPHEN [Concomitant]
     Indication: POSTOPERATIVE ANALGESIA
     Route: 065
  12. KETOROLAC [Concomitant]
     Indication: POSTOPERATIVE ANALGESIA
     Route: 065
  13. BUPIVACAINE [Concomitant]
     Indication: POSTOPERATIVE ANALGESIA
     Route: 065
  14. BUPIVACAINE [Concomitant]
     Route: 065
  15. SOLUMEDROL [Concomitant]
     Indication: POSTOPERATIVE ANALGESIA
     Route: 065

REACTIONS (2)
  - Conversion disorder [Unknown]
  - Post procedural complication [Unknown]
